FAERS Safety Report 12109802 (Version 4)
Quarter: 2016Q3

REPORT INFORMATION
  Report Type: Report from Study
  Country: US (occurrence: US)
  Receive Date: 20160224
  Receipt Date: 20160901
  Transmission Date: 20161109
  Serious: Yes (Hospitalization)
  Sender: FDA-Public Use
  Company Number: US-BAYER-2016-035558

PATIENT
  Age: 48 Year
  Sex: Female

DRUGS (6)
  1. UPTRAVI [Suspect]
     Active Substance: SELEXIPAG
     Dosage: 200 MCG QD
     Dates: start: 20160729
  2. ADEMPAS [Suspect]
     Active Substance: RIOCIGUAT
     Indication: PULMONARY ARTERIAL HYPERTENSION
     Dosage: 0.5 MG, TID
     Dates: start: 20151030
  3. UPTRAVI [Suspect]
     Active Substance: SELEXIPAG
     Dosage: 200MCG BID
  4. ADEMPAS [Suspect]
     Active Substance: RIOCIGUAT
     Indication: PULMONARY ARTERIAL HYPERTENSION
     Dosage: 2.5 MG, BID
     Route: 048
     Dates: start: 20151029
  5. UPTRAVI [Suspect]
     Active Substance: SELEXIPAG
     Dosage: UNK
     Dates: start: 20160727
  6. ADEMPAS [Suspect]
     Active Substance: RIOCIGUAT
     Indication: PULMONARY ARTERIAL HYPERTENSION
     Dosage: 1 MG, TID

REACTIONS (8)
  - Cough [None]
  - Headache [None]
  - Nausea [None]
  - Blood potassium decreased [None]
  - Diarrhoea [None]
  - Fluid retention [None]
  - Chest pain [None]
  - Pericardial effusion [None]

NARRATIVE: CASE EVENT DATE: 20160210
